FAERS Safety Report 6444462-7 (Version None)
Quarter: 2009Q4

REPORT INFORMATION
  Report Type: 
  Country: None (occurrence: None)
  Receive Date: 20091118
  Receipt Date: 20091113
  Transmission Date: 20100525
  Serious: Yes (Death, Other)
  Sender: FDA-Public Use
  Company Number: US-AMGEN-KDL370694

PATIENT
  Age: 87 Year
  Sex: Female

DRUGS (3)
  1. PROCRIT [Suspect]
     Indication: DRUG USE FOR UNKNOWN INDICATION
     Dates: start: 20060101
  2. CARDIAC MEDICATION NOS [Concomitant]
  3. UNSPECIFIED MEDICATION [Concomitant]

REACTIONS (2)
  - CARDIAC FAILURE [None]
  - DEATH [None]
